FAERS Safety Report 15290806 (Version 5)
Quarter: 2019Q3

REPORT INFORMATION
  Report Type: Spontaneous
  Country: AU (occurrence: AU)
  Receive Date: 20180817
  Receipt Date: 20190919
  Transmission Date: 20191004
  Serious: Yes (Hospitalization)
  Sender: FDA-Public Use
  Company Number: AU-PFIZER INC-2018326266

PATIENT
  Age: 29 Year
  Sex: Male

DRUGS (1)
  1. CHAMPIX [Suspect]
     Active Substance: VARENICLINE TARTRATE
     Indication: SMOKING CESSATION THERAPY
     Dosage: UNK
     Dates: start: 20110321

REACTIONS (7)
  - Mental disorder [Unknown]
  - Mania [Unknown]
  - Bipolar disorder [Unknown]
  - Emotional distress [Unknown]
  - Psychiatric symptom [Unknown]
  - Drug ineffective [Unknown]
  - Traumatic shock [Unknown]

NARRATIVE: CASE EVENT DATE: 20110408
